FAERS Safety Report 5034901-0 (Version None)
Quarter: 2006Q2

REPORT INFORMATION
  Report Type: 
  Country: None (occurrence: None)
  Receive Date: 20060623
  Receipt Date: 20060623
  Transmission Date: 20061013
  Serious: Yes (Death)
  Sender: FDA-Public Use
  Company Number: None

PATIENT
  Sex: Female
  Weight: 68.9467 kg

DRUGS (9)
  1. METHOTREXATE [Suspect]
     Indication: RHEUMATOID ARTHRITIS
     Dosage: 20 MG A WEEK PO
     Route: 048
     Dates: start: 20050812, end: 20060523
  2. ENBREL [Suspect]
     Indication: RHEUMATOID ARTHRITIS
     Dosage: SEE IMAGE
     Route: 058
     Dates: start: 20050812, end: 20060523
  3. PREDNISONE [Concomitant]
  4. LISINOPRIL [Concomitant]
  5. ROBITTUSIN AC [Concomitant]
  6. METHOTREXATE [Concomitant]
  7. PLACEBO [Concomitant]
  8. HYDROXYCHLOROQUINE SULFATE [Concomitant]
  9. SULFASALAZINE [Concomitant]

REACTIONS (2)
  - CONVULSION [None]
  - RESPIRATORY ARREST [None]
